FAERS Safety Report 19007521 (Version 11)
Quarter: 2022Q1

REPORT INFORMATION
  Report Type: Report from Study
  Country: CA (occurrence: CA)
  Receive Date: 20210315
  Receipt Date: 20220117
  Transmission Date: 20220423
  Serious: Yes (Other)
  Sender: FDA-Public Use
  Company Number: CA-JNJFOC-20210316782

PATIENT
  Age: 9 Year
  Sex: Male
  Weight: 41.1 kg

DRUGS (12)
  1. REMICADE [Suspect]
     Active Substance: INFLIXIMAB
     Indication: Crohn^s disease
     Dosage: SINCE 26-JAN-2021, THE PATIENT RECEIVED 3 DOSES OF 200MG @ 0-2-6 WKS?AS PER REPORT ON 22-JUN-2021,
     Route: 042
     Dates: start: 20210126
  2. REMICADE [Suspect]
     Active Substance: INFLIXIMAB
     Dosage: ON 06-APR-2021, THE PATIENT RECEIVED 4TH 250 MG INFLIXIMAB, INFUSION.?ON 04-MAY-2021, THE PATIENT RE
     Route: 042
     Dates: start: 20210317
  3. REMICADE [Suspect]
     Active Substance: INFLIXIMAB
     Dosage: 7.7MG/KG. ON 02-JUL-2021 THE PATIENT RECEIVED REMICADE.
     Route: 042
     Dates: start: 20210702
  4. REMICADE [Suspect]
     Active Substance: INFLIXIMAB
     Route: 042
  5. METHOTREXATE [Concomitant]
     Active Substance: METHOTREXATE
     Indication: Crohn^s disease
     Route: 048
     Dates: start: 20210528
  6. METHOTREXATE [Concomitant]
     Active Substance: METHOTREXATE
     Route: 048
     Dates: start: 20210402, end: 20210402
  7. METHOTREXATE [Concomitant]
     Active Substance: METHOTREXATE
     Route: 048
     Dates: start: 20210430
  8. METHOTREXATE [Concomitant]
     Active Substance: METHOTREXATE
     Route: 048
     Dates: start: 20210723
  9. METHOTREXATE [Concomitant]
     Active Substance: METHOTREXATE
     Route: 048
     Dates: start: 20210528
  10. METHOTREXATE [Concomitant]
     Active Substance: METHOTREXATE
     Route: 048
     Dates: start: 20210723
  11. METHOTREXATE [Concomitant]
     Active Substance: METHOTREXATE
     Route: 048
     Dates: start: 20210528
  12. PREDNISONE [Concomitant]
     Active Substance: PREDNISONE
     Indication: Product used for unknown indication
     Route: 065

REACTIONS (8)
  - Rectal haemorrhage [Recovered/Resolved]
  - Anal incontinence [Not Recovered/Not Resolved]
  - General physical health deterioration [Not Recovered/Not Resolved]
  - Abdominal pain [Recovered/Resolved]
  - Diarrhoea [Not Recovered/Not Resolved]
  - Headache [Unknown]
  - Off label use [Unknown]
  - Product use issue [Unknown]

NARRATIVE: CASE EVENT DATE: 20210101
